FAERS Safety Report 6760161-6 (Version None)
Quarter: 2010Q2

REPORT INFORMATION
  Report Type: 
  Country: None (occurrence: None)
  Receive Date: 20100608
  Receipt Date: 20100601
  Transmission Date: 20101027
  Serious: Yes (Other)
  Sender: FDA-Public Use
  Company Number: TR-B.I. PHARMACEUTICALS,INC./RIDGEFIELD-2010-DE-03002GD

PATIENT
  Age: 45 Year
  Sex: Female

DRUGS (2)
  1. PRAMIPEXOLE DIHYDROCHLORIDE [Suspect]
     Indication: PARKINSON'S DISEASE
     Dosage: 5 MG
  2. L-DOPA [Suspect]
     Indication: PARKINSON'S DISEASE
     Dosage: 700 MG

REACTIONS (3)
  - COMPULSIVE SHOPPING [None]
  - IMPULSIVE BEHAVIOUR [None]
  - PATHOLOGICAL GAMBLING [None]
